FAERS Safety Report 17104239 (Version 1)
Quarter: 2019Q4

REPORT INFORMATION
  Report Type: Spontaneous
  Country: US (occurrence: US)
  Receive Date: 20191107
  Receipt Date: 20191107
  Transmission Date: 20200122
  Serious: Yes (Death)
  Sender: FDA-Public Use
  Company Number: None

PATIENT
  Sex: Female

DRUGS (14)
  1. OANTOPRAZOLE [Concomitant]
  2. POT CL MICRO [Concomitant]
  3. SILDENAFIL 20MG [Suspect]
     Active Substance: SILDENAFIL
     Indication: COR PULMONALE
     Route: 048
     Dates: start: 20150918
  4. CLONCORE [Concomitant]
  5. FUROSEMIDE. [Concomitant]
     Active Substance: FUROSEMIDE
  6. TACROLIMUS. [Concomitant]
     Active Substance: TACROLIMUS
  7. SPIRONOLACT [Concomitant]
     Active Substance: SPIRONOLACTONE
  8. AMYPALAZINE [Concomitant]
  9. AMLODIPINE [Concomitant]
     Active Substance: AMLODIPINE BESYLATE
  10. BYDHOCO/APAP [Concomitant]
  11. ALLOPURINOL. [Concomitant]
     Active Substance: ALLOPURINOL
  12. LEVOTHYROXIN [Concomitant]
     Active Substance: LEVOTHYROXINE
  13. MYCOPHENOLAT [Concomitant]
     Active Substance: MYCOPHENOLATE MOFETIL
  14. TORSEMIDE. [Concomitant]
     Active Substance: TORSEMIDE

REACTIONS (1)
  - Death [None]
